FAERS Safety Report 9052613 (Version 2)
Quarter: 2013Q1

REPORT INFORMATION
  Report Type: Spontaneous
  Country: US (occurrence: US)
  Receive Date: 20130207
  Receipt Date: 20130211
  Transmission Date: 20140127
  Serious: Yes (Hospitalization, Congenital Anomaly, Other)
  Sender: FDA-Public Use
  Company Number: US-PFIZER INC-2013038728

PATIENT
  Sex: Male

DRUGS (10)
  1. ZOLOFT [Suspect]
     Indication: DEPRESSION
     Dosage: UNK
     Route: 064
     Dates: start: 200305, end: 200310
  2. ZOLOFT [Suspect]
     Dosage: UNK
     Route: 064
     Dates: start: 2003, end: 2004
  3. TYLENOL [Concomitant]
     Dosage: UNK
     Route: 064
  4. IBUPROFEN [Concomitant]
     Dosage: UNK
     Route: 064
  5. MACROBID [Concomitant]
     Dosage: UNK
     Route: 064
  6. PRENATAL VITAMINS [Concomitant]
     Dosage: UNK
     Route: 064
  7. LORTAB [Concomitant]
     Dosage: UNK
     Route: 064
  8. AMOXICILLIN [Concomitant]
     Dosage: UNK
     Route: 064
  9. ORTHO EVRA [Concomitant]
     Dosage: UNK
     Route: 064
  10. HYDROCODONE/APAP [Concomitant]
     Dosage: UNK
     Route: 064

REACTIONS (6)
  - Maternal exposure timing unspecified [Unknown]
  - Heart disease congenital [Unknown]
  - Congenital anomaly [Unknown]
  - Premature baby [Unknown]
  - Hypoplastic left heart syndrome [Unknown]
  - Cardiac disorder [Unknown]
